FAERS Safety Report 6058047-8 (Version None)
Quarter: 2009Q1

REPORT INFORMATION
  Report Type: 
  Country: None (occurrence: None)
  Receive Date: 20090127
  Receipt Date: 20090105
  Transmission Date: 20090719
  Serious: Yes (Life-Threatening)
  Sender: FDA-Public Use
  Company Number: 2009000027

PATIENT
  Age: 64 Year
  Sex: Male

DRUGS (1)
  1. TARCEVA [Suspect]
     Indication: LUNG NEOPLASM MALIGNANT
     Dosage: 150 MG QD ORAL
     Route: 048
     Dates: start: 20081212, end: 20081230

REACTIONS (4)
  - ACNE [None]
  - ANOREXIA [None]
  - NAUSEA [None]
  - PULMONARY CONGESTION [None]
